FAERS Safety Report 25169241 (Version 2)
Quarter: 2025Q2

REPORT INFORMATION
  Report Type: Spontaneous
  Country: CN (occurrence: CN)
  Receive Date: 20250407
  Receipt Date: 20250408
  Transmission Date: 20250716
  Serious: Yes (Hospitalization)
  Sender: NOVARTIS
  Company Number: CN-002147023-NVSC2025CN055712

PATIENT
  Age: 37 Year
  Sex: Female
  Weight: 55 kg

DRUGS (2)
  1. SECUKINUMAB [Suspect]
     Active Substance: SECUKINUMAB
     Indication: Psoriasis
     Route: 058
     Dates: start: 20241228, end: 20250328
  2. SECUKINUMAB [Suspect]
     Active Substance: SECUKINUMAB
     Indication: Immunosuppression

REACTIONS (4)
  - Impaired healing [Recovering/Resolving]
  - Wound infection [Recovering/Resolving]
  - Wound secretion [Unknown]
  - Infection [Unknown]

NARRATIVE: CASE EVENT DATE: 20250220
